FAERS Safety Report 16286619 (Version 1)
Quarter: 2019Q2

REPORT INFORMATION
  Report Type: Spontaneous
  Country: US (occurrence: US)
  Receive Date: 20190507
  Receipt Date: 20190507
  Transmission Date: 20190711
  Serious: No
  Sender: FDA-Public Use
  Company Number: None

PATIENT
  Age: 40 Year
  Sex: Female
  Weight: 81.9 kg

DRUGS (1)
  1. HAILEY 24 FE [Suspect]
     Active Substance: ETHINYL ESTRADIOL\NORETHINDRONE ACETATE
     Indication: CONTRACEPTION
     Dosage: ?          QUANTITY:1 TABLET(S);?
     Route: 048
     Dates: start: 20190411, end: 20190502

REACTIONS (8)
  - Panic attack [None]
  - Paranoia [None]
  - Suicidal ideation [None]
  - Anxiety [None]
  - Chills [None]
  - Crying [None]
  - Screaming [None]
  - Apathy [None]

NARRATIVE: CASE EVENT DATE: 20190503
